FAERS Safety Report 5860584-3 (Version None)
Quarter: 2008Q3

REPORT INFORMATION
  Report Type: 
  Country: None (occurrence: None)
  Receive Date: 20080827
  Receipt Date: 20070920
  Transmission Date: 20090109
  Serious: No
  Sender: FDA-Public Use
  Company Number: US-ABBOTT-07P-163-0417236-00

PATIENT
  Sex: Male
  Weight: 76.726 kg

DRUGS (7)
  1. NIASPAN [Suspect]
     Indication: HIGH DENSITY LIPOPROTEIN INCREASED
     Dosage: TWO TABLETS AT HS
     Route: 048
     Dates: start: 20060401, end: 20070914
  2. NIASPAN [Suspect]
     Dosage: TWO TABLETS AT HS COATED
     Route: 048
     Dates: start: 20070914
  3. WARFARIN SODIUM [Concomitant]
     Indication: ATRIAL FIBRILLATION
     Route: 048
  4. WARFARIN SODIUM [Concomitant]
     Route: 048
  5. METOPROLOL SUCCINATE [Concomitant]
     Indication: ATRIAL FIBRILLATION
     Route: 048
  6. ALLOPURINOL [Concomitant]
     Indication: GOUT
     Route: 048
  7. INEGY [Concomitant]
     Indication: BLOOD CHOLESTEROL INCREASED
     Route: 048

REACTIONS (4)
  - BURNING SENSATION [None]
  - DYSPEPSIA [None]
  - FLUSHING [None]
  - PAIN [None]
